FAERS Safety Report 5466825-9 (Version None)
Quarter: 2007Q3

REPORT INFORMATION
  Report Type: 
  Country: None (occurrence: None)
  Receive Date: 20070920
  Receipt Date: 20070827
  Transmission Date: 20080115
  Serious: Yes (Hospitalization)
  Sender: FDA-Public Use
  Company Number: 6037393

PATIENT
  Age: 68 Year
  Sex: Female

DRUGS (5)
  1. SOTALOL HCL [Suspect]
     Indication: DRUG USE FOR UNKNOWN INDICATION
     Dosage: 80 MG (40 MG, 2 IN1 D) ORAL
     Route: 048
     Dates: start: 20070717, end: 20070726
  2. WARFARIN SODIUM [Concomitant]
  3. SIMVASTATIN [Concomitant]
  4. CORTISONE ACETATE [Concomitant]
  5. OMEPRAZOLE [Concomitant]

REACTIONS (10)
  - DEPRESSION [None]
  - FATIGUE [None]
  - FREEZING PHENOMENON [None]
  - HEADACHE [None]
  - HYPERHIDROSIS [None]
  - INSOMNIA [None]
  - NIGHTMARE [None]
  - PERICARDITIS [None]
  - SENSATION OF FOREIGN BODY [None]
  - VISION BLURRED [None]
